FAERS Safety Report 12779603 (Version 3)
Quarter: 2016Q4

REPORT INFORMATION
  Report Type: Report from Study
  Country: US (occurrence: US)
  Receive Date: 20160926
  Receipt Date: 20161208
  Transmission Date: 20170207
  Serious: Yes (Other)
  Sender: FDA-Public Use
  Company Number: US-OTSUKA-2016_022296

PATIENT
  Age: 38 Year
  Sex: Male

DRUGS (16)
  1. BLINDED *CHLOROTHIAZIDE [Suspect]
     Active Substance: CHLOROTHIAZIDE
     Indication: CARDIAC FAILURE ACUTE
     Dosage: UNK
     Route: 048
     Dates: start: 20160913, end: 20160914
  2. BLINDED *METOLAZONE [Suspect]
     Active Substance: METOLAZONE
     Indication: CARDIAC FAILURE ACUTE
     Dosage: UNK
     Route: 048
     Dates: start: 20160913, end: 20160914
  3. FUROSEMIDE. [Concomitant]
     Active Substance: FUROSEMIDE
     Indication: DIURETIC THERAPY
     Dosage: 20 MG, Q1HR
     Route: 042
     Dates: start: 20160913, end: 20160914
  4. VALSARTAN. [Concomitant]
     Active Substance: VALSARTAN
     Indication: EJECTION FRACTION DECREASED
     Dosage: 26 MG, (AM)
     Route: 048
     Dates: start: 20160914, end: 20160914
  5. HYDRALAZINE [Concomitant]
     Active Substance: HYDRALAZINE HYDROCHLORIDE
     Indication: CARDIAC FAILURE
     Dosage: 100 MG, TID
     Route: 048
     Dates: end: 20160913
  6. BLINDED TOLVAPTAN [Suspect]
     Active Substance: TOLVAPTAN
     Indication: CARDIAC FAILURE ACUTE
     Dosage: UNK
     Route: 048
     Dates: start: 20160913, end: 20160914
  7. CARVEDILOL. [Concomitant]
     Active Substance: CARVEDILOL
     Indication: HYPERTENSION
     Dosage: 6.25 MG, BID
     Route: 048
  8. ISDN [Concomitant]
     Indication: EJECTION FRACTION DECREASED
     Dosage: 30 MG, QD (MORNING DOSE)
     Route: 048
     Dates: start: 20160914, end: 20160914
  9. CARVEDILOL. [Concomitant]
     Active Substance: CARVEDILOL
     Indication: CARDIAC FAILURE
     Dosage: 12.5 MG, BID
     Route: 048
     Dates: end: 20160913
  10. CARVEDILOL. [Concomitant]
     Active Substance: CARVEDILOL
     Indication: EJECTION FRACTION DECREASED
     Dosage: 12.5 MG, QD (MORNING DOSE)
     Route: 048
     Dates: start: 20160914, end: 20160914
  11. VALSARTAN. [Concomitant]
     Active Substance: VALSARTAN
     Indication: CARDIAC FAILURE
     Dosage: 26 MG, BID
     Route: 048
     Dates: start: 20160913, end: 20160913
  12. HYDRALAZINE [Concomitant]
     Active Substance: HYDRALAZINE HYDROCHLORIDE
     Indication: EJECTION FRACTION DECREASED
     Dosage: 100 MG, QD (MORNING DOSE)
     Route: 048
     Dates: start: 20160914, end: 20160914
  13. HYDRALAZINE [Concomitant]
     Active Substance: HYDRALAZINE HYDROCHLORIDE
     Indication: HYPERTENSION
  14. ISDN [Concomitant]
     Indication: CARDIAC FAILURE
     Dosage: 30 MG, TID
     Route: 048
     Dates: end: 20160913
  15. VALSARTAN. [Concomitant]
     Active Substance: VALSARTAN
     Indication: HYPERTENSION
  16. ISDN [Concomitant]
     Indication: HYPERTENSION

REACTIONS (1)
  - Hypotension [Recovered/Resolved]

NARRATIVE: CASE EVENT DATE: 20160914
